FAERS Safety Report 15589766 (Version 1)
Quarter: 2018Q4

REPORT INFORMATION
  Report Type: Report from Study
  Country: GB (occurrence: GB)
  Receive Date: 20181106
  Receipt Date: 20181106
  Transmission Date: 20190205
  Serious: Yes (Hospitalization)
  Sender: FDA-Public Use
  Company Number: GB-IPSEN BIOPHARMACEUTICALS, INC.-2018-16476

PATIENT
  Sex: Male

DRUGS (1)
  1. SOMATULINE AUTOGEL [Suspect]
     Active Substance: LANREOTIDE ACETATE
     Indication: PRODUCT USED FOR UNKNOWN INDICATION
     Dosage: ADMINISTER 120MG (ONE SYRINGE) AND 60MG (ONE SYRINGE)
     Route: 058
     Dates: start: 20170815

REACTIONS (2)
  - Gastrointestinal disorder [Unknown]
  - Inappropriate schedule of product administration [Unknown]
